FAERS Safety Report 19847922 (Version 1)
Quarter: 2021Q3

REPORT INFORMATION
  Report Type: Other
  Country: GB (occurrence: GB)
  Receive Date: 20210917
  Receipt Date: 20210917
  Transmission Date: 20211014
  Serious: Yes (Hospitalization, Other)
  Sender: FDA-Public Use
  Company Number: GB-GLENMARK PHARMACEUTICALS-2021GMK067825

PATIENT

DRUGS (8)
  1. URSODEOXYCHOLIC ACID [Suspect]
     Active Substance: URSODIOL
     Indication: PRODUCT USED FOR UNKNOWN INDICATION
     Dosage: UNK
     Route: 065
  2. CARVEDILOL. [Concomitant]
     Active Substance: CARVEDILOL
     Indication: PRODUCT USED FOR UNKNOWN INDICATION
     Dosage: UNK
     Route: 065
  3. FUROSEMIDE. [Concomitant]
     Active Substance: FUROSEMIDE
     Indication: PRODUCT USED FOR UNKNOWN INDICATION
     Dosage: UNK
     Route: 065
  4. SPIRONOLACTONE. [Concomitant]
     Active Substance: SPIRONOLACTONE
     Indication: PRODUCT USED FOR UNKNOWN INDICATION
     Dosage: UNK
     Route: 065
  5. VITAMIN D NOS [Concomitant]
     Active Substance: VITAMIN D NOS
     Indication: PRODUCT USED FOR UNKNOWN INDICATION
     Dosage: UNK
     Route: 065
  6. INVITA D3 [Concomitant]
     Indication: PRODUCT USED FOR UNKNOWN INDICATION
     Dosage: UNK
     Route: 065
  7. SODIUM FEREDETATE [Concomitant]
     Active Substance: SODIUM FEREDETATE
     Indication: PRODUCT USED FOR UNKNOWN INDICATION
     Dosage: UNK
     Route: 065
  8. FORSTEO [Suspect]
     Active Substance: TERIPARATIDE
     Indication: OSTEOPOROSIS
     Dosage: 20 MICROGRAM, QD (DAILY)
     Route: 058
     Dates: start: 20190628

REACTIONS (20)
  - Ascites [Not Recovered/Not Resolved]
  - Malaise [Unknown]
  - Peripheral swelling [Unknown]
  - Injection site bruising [Unknown]
  - Incorrect product administration duration [Unknown]
  - Spinal fracture [Unknown]
  - Arthralgia [Not Recovered/Not Resolved]
  - Gastrointestinal haemorrhage [Not Recovered/Not Resolved]
  - Haemorrhage [Unknown]
  - Oesophageal rupture [Unknown]
  - Iron deficiency anaemia [Unknown]
  - Hiatus hernia [Unknown]
  - Vitamin D deficiency [Unknown]
  - Lower limb fracture [Unknown]
  - Vertigo [Unknown]
  - Dizziness [Not Recovered/Not Resolved]
  - Primary biliary cholangitis [Unknown]
  - Injection site pain [Unknown]
  - Wrist fracture [Unknown]
  - Dyspnoea [Unknown]
